FAERS Safety Report 8302788 (Version 3)
Quarter: 2015Q3

REPORT INFORMATION
  Report Type: Spontaneous
  Country: JP (occurrence: JP)
  Receive Date: 20111220
  Receipt Date: 20150812
  Transmission Date: 20151125
  Serious: Yes (Disabling, Other)
  Sender: FDA-Public Use
  Company Number: JP-GLAXOSMITHKLINE-B0766955A

PATIENT
  Age: 44 Year
  Sex: Male

DRUGS (10)
  1. AKINETON [Suspect]
     Active Substance: BIPERIDEN HYDROCHLORIDE
     Indication: DEPRESSION
     Dosage: 3 MG, 1D
     Route: 048
     Dates: start: 20110720, end: 20111121
  2. LAMOTRIGINE. [Suspect]
     Active Substance: LAMOTRIGINE
     Indication: BIPOLAR DISORDER
     Dosage: 25 MG, QOD
     Route: 048
     Dates: start: 20111012, end: 20111024
  3. DEPROMEL [Suspect]
     Active Substance: FLUVOXAMINE
     Indication: DEPRESSION
     Dosage: 225 MG, 1D
     Route: 048
     Dates: start: 20110720
  4. DEPAKENE [Suspect]
     Active Substance: VALPROIC ACID
     Indication: DEPRESSION
     Dosage: 1200 MG, 1D
     Route: 048
     Dates: start: 20110720, end: 20111121
  5. ABILIFY [Suspect]
     Active Substance: ARIPIPRAZOLE
     Indication: DEPRESSION
     Dosage: 6 MG, 1D
     Route: 048
     Dates: start: 20110720, end: 20111121
  6. HALCION [Suspect]
     Active Substance: TRIAZOLAM
     Indication: DEPRESSION
     Dosage: 0.25 MG, 1D
     Route: 048
     Dates: start: 20110720, end: 20111121
  7. LAMOTRIGINE. [Suspect]
     Active Substance: LAMOTRIGINE
     Dosage: 25 MG, QD
     Route: 048
     Dates: start: 20111025, end: 20111112
  8. TETRAMIDE [Suspect]
     Active Substance: MIANSERIN
     Indication: DEPRESSION
     Dosage: 20 MG, 1D
     Route: 048
     Dates: start: 20110720, end: 20111121
  9. LENDORMIN [Suspect]
     Active Substance: BROTIZOLAM
     Indication: DEPRESSION
     Dosage: 0.25 MG, 1D
     Route: 048
     Dates: start: 20110720, end: 20111121
  10. ROHYPNOL [Suspect]
     Active Substance: FLUNITRAZEPAM
     Indication: DEPRESSION
     Dosage: 2 MG, 1D
     Route: 048
     Dates: start: 20110720, end: 20111121

REACTIONS (18)
  - Alanine aminotransferase increased [Unknown]
  - Gamma-glutamyltransferase increased [Unknown]
  - Acute generalised exanthematous pustulosis [Recovered/Resolved]
  - Dermatitis exfoliative [Recovered/Resolved]
  - Swelling face [Unknown]
  - Rash pustular [Recovered/Resolved]
  - Pyrexia [Recovered/Resolved]
  - Lymphadenopathy [Unknown]
  - Blood lactate dehydrogenase increased [Unknown]
  - Eosinophil count increased [Unknown]
  - White blood cell count increased [Unknown]
  - Pruritus [Recovered/Resolved]
  - Rash [Recovered/Resolved]
  - C-reactive protein increased [Unknown]
  - Dermatitis acneiform [Recovered/Resolved]
  - Rash papular [Recovered/Resolved]
  - Drug eruption [Recovered/Resolved]
  - Erythema [Recovered/Resolved]

NARRATIVE: CASE EVENT DATE: 20111109
